FAERS Safety Report 9555120 (Version 1)
Quarter: 2013Q3

REPORT INFORMATION
  Report Type: Spontaneous
  Country: US (occurrence: None)
  Receive Date: 20130815
  Receipt Date: 20130815
  Transmission Date: 20140515
  Serious: Yes (Other)
  Sender: FDA-Public Use
  Company Number: ADR-2012-02276

PATIENT
  Age: 38 Year
  Sex: Male

DRUGS (1)
  1. BACLOFEN INTRATHECAL [Suspect]

REACTIONS (4)
  - Drug withdrawal syndrome [None]
  - Muscle spasticity [None]
  - Mental status changes [None]
  - Implant site infection [None]
